FAERS Safety Report 19424700 (Version 2)
Quarter: 2021Q3

REPORT INFORMATION
  Report Type: Spontaneous
  Country: US (occurrence: US)
  Receive Date: 20210616
  Receipt Date: 20210803
  Transmission Date: 20211014
  Serious: No
  Sender: FDA-Public Use
  Company Number: US-SK LIFE SCIENCE, INC-SKPVG-2021-000109

PATIENT

DRUGS (4)
  1. XCOPRI [Suspect]
     Active Substance: CENOBAMATE
     Indication: SEIZURE
     Dosage: UNK
     Route: 065
     Dates: start: 202101
  2. XCOPRI [Suspect]
     Active Substance: CENOBAMATE
     Dosage: 100 MILLIGRAM, QD
     Route: 065
     Dates: start: 202101
  3. XCOPRI [Suspect]
     Active Substance: CENOBAMATE
     Dosage: 25 MILLIGRAM
     Route: 065
  4. LAMICTAL [Concomitant]
     Active Substance: LAMOTRIGINE
     Indication: PRODUCT USED FOR UNKNOWN INDICATION
     Dosage: UNK
     Route: 065

REACTIONS (3)
  - Seizure [Not Recovered/Not Resolved]
  - Headache [Not Recovered/Not Resolved]
  - Eyelid ptosis [Not Recovered/Not Resolved]
